FAERS Safety Report 7472488-3 (Version None)
Quarter: 2011Q2

REPORT INFORMATION
  Report Type: 
  Country: None (occurrence: None)
  Receive Date: 20110511
  Receipt Date: 20110331
  Transmission Date: 20111010
  Serious: Yes (Hospitalization, Other)
  Sender: FDA-Public Use
  Company Number: US-BAYER-201037413NA

PATIENT
  Age: 46 Year
  Sex: Female
  Weight: 90.703 kg

DRUGS (7)
  1. PLAVIX [Concomitant]
  2. YAZ [Suspect]
     Indication: PRODUCT USED FOR UNKNOWN INDICATION
     Route: 048
     Dates: start: 20040721, end: 20040101
  3. SALINE EYE DROPS [Concomitant]
  4. CORTISPORIN OPHTHALMIC [Concomitant]
  5. YASMIN [Suspect]
     Indication: PRODUCT USED FOR UNKNOWN INDICATION
     Route: 048
     Dates: start: 20040721, end: 20040101
  6. CAPTOPREL [Concomitant]
  7. DROSPIRENONE AND ETHINYL ESTRADIOL [Suspect]
     Indication: PRODUCT USED FOR UNKNOWN INDICATION
     Route: 048
     Dates: start: 20040721, end: 20040101

REACTIONS (3)
  - SUPERIOR SAGITTAL SINUS THROMBOSIS [None]
  - CEREBROVASCULAR ACCIDENT [None]
  - PAIN [None]
